FAERS Safety Report 4272885-3 (Version None)
Quarter: 2004Q1

REPORT INFORMATION
  Report Type: 
  Country: None (occurrence: None)
  Receive Date: 20040114
  Receipt Date: 20040107
  Transmission Date: 20041129
  Serious: Yes (Hospitalization, Other)
  Sender: FDA-Public Use
  Company Number: US-SHR-03-009574

PATIENT
  Age: 65 Year
  Sex: Female
  Weight: 76.2 kg

DRUGS (7)
  1. BETASERON [Suspect]
     Indication: MULTIPLE SCLEROSIS
     Dosage: 8 MIU, EVERY 2D, SUBCUTANEOUS
     Route: 058
     Dates: start: 20030424, end: 20030523
  2. SYMMETREL/NET/(AMANTADINE HYDROCHLORIDE) [Concomitant]
  3. NEURONTIN [Concomitant]
  4. PLAVIX [Concomitant]
  5. ACIPHEX [Concomitant]
  6. OSCAL [Concomitant]
  7. LOPRESSOR [Concomitant]

REACTIONS (8)
  - BLOOD CHOLESTEROL INCREASED [None]
  - CEREBROVASCULAR ACCIDENT [None]
  - CIRCULATORY COLLAPSE [None]
  - FAECAL INCONTINENCE [None]
  - GRAND MAL CONVULSION [None]
  - SUBARACHNOID HAEMORRHAGE [None]
  - URINARY INCONTINENCE [None]
  - WEIGHT DECREASED [None]
